FAERS Safety Report 8612170 (Version 3)
Quarter: 2012Q4

REPORT INFORMATION
  Report Type: Spontaneous
  Country: DK (occurrence: None)
  Receive Date: 20120530
  Receipt Date: 20120928
  Transmission Date: 20130627
  Serious: Yes (Hospitalization)
  Sender: FDA-Public Use
  Company Number: 1291703

PATIENT
  Sex: Female

DRUGS (5)
  1. CARBOPLATIN [Suspect]
     Indication: NON-SMALL CELL LUNG CANCER
     Dosage: 350 MG MILLIGRAM(S), INTRAVENOUS (NOT OTHERWISE SPECIFIED)
     Route: 042
  2. VINORELBINE [Suspect]
     Indication: NON-SMALL CELL LUNG CANCER
     Dosage: 80 MG MILLIGRAM(S), ORAL
  3. AVASTIN [Suspect]
     Indication: NON-SMALL CELL LUNG CANCER
     Dosage: 400 MG MILLGRAM(S), INTRAVENOUS (NOT OTHERWISE SPECIFIED)
     Route: 042
     Dates: start: 20120307, end: 20120307
  4. PREDNISOLONE [Concomitant]
  5. EMPERAL [Concomitant]

REACTIONS (12)
  - Thermal burn [None]
  - Fall [None]
  - Wound [None]
  - Impaired healing [None]
  - Streptococcal infection [None]
  - Sepsis [None]
  - Wound necrosis [None]
  - Limb injury [None]
  - Pseudomonas test positive [None]
  - Escherichia test positive [None]
  - Accident [None]
  - Skin graft [None]
